FAERS Safety Report 11819214 (Version 1)
Quarter: 2015Q4

REPORT INFORMATION
  Report Type: Spontaneous
  Country: US (occurrence: None)
  Receive Date: 20151209
  Receipt Date: 20151209
  Transmission Date: 20160305
  Serious: No
  Sender: FDA-Public Use
  Company Number: None

PATIENT
  Age: 100 Year
  Sex: Male
  Weight: 83.46 kg

DRUGS (17)
  1. PROBIOTICS [Concomitant]
     Active Substance: PROBIOTICS NOS
  2. FISH OILS [Concomitant]
  3. ALOE [Concomitant]
     Active Substance: ALOE
  4. ZINC [Concomitant]
     Active Substance: ZINC\ZINC CHLORIDE
  5. VITAMIN D [Concomitant]
     Active Substance: CHOLECALCIFEROL
  6. ASPIRIN. [Concomitant]
     Active Substance: ASPIRIN
  7. CINNAMON. [Concomitant]
     Active Substance: CINNAMON
  8. MAGNESIUM [Concomitant]
     Active Substance: MAGNESIUM
  9. CIPRO [Suspect]
     Active Substance: CIPROFLOXACIN HYDROCHLORIDE
     Indication: INFECTION PROPHYLAXIS
     Route: 048
     Dates: start: 20151007, end: 20151007
  10. MULTIPLE VIT [Concomitant]
  11. CALCIUM [Concomitant]
     Active Substance: CALCIUM
  12. GINGER. [Concomitant]
     Active Substance: GINGER
  13. PAPAYA. [Concomitant]
     Active Substance: PAPAYA
  14. BENEFIBER [Concomitant]
     Active Substance: STARCH, WHEAT
  15. TRANSENE (CLORAZEPATE) [Concomitant]
  16. RESVERATROL [Concomitant]
     Active Substance: RESVERATROL
  17. VITAMIN C [Concomitant]
     Active Substance: ASCORBIC ACID

REACTIONS (2)
  - Muscle disorder [None]
  - Arthritis [None]

NARRATIVE: CASE EVENT DATE: 20151007
